FAERS Safety Report 8111442-5 (Version None)
Quarter: 2012Q1

REPORT INFORMATION
  Report Type: 
  Country: None (occurrence: None)
  Receive Date: 20120203
  Receipt Date: 20111214
  Transmission Date: 20120608
  Serious: No
  Sender: FDA-Public Use
  Company Number: US-GLAXOSMITHKLINE-A0958174A

PATIENT
  Age: 31 Year
  Sex: Female

DRUGS (6)
  1. TEMAZEPAM [Concomitant]
  2. SPIRONOLACTONE [Concomitant]
  3. ADDERALL 5 [Concomitant]
  4. CYMBALTA [Concomitant]
  5. LAMICTAL [Suspect]
     Indication: DEPRESSION
     Dosage: 25MGK AT NIGHT
     Route: 048
     Dates: start: 20111213, end: 20111213
  6. WELLBUTRIN [Concomitant]

REACTIONS (8)
  - SWELLING FACE [None]
  - ORAL DISCOMFORT [None]
  - BURNING SENSATION [None]
  - HYPERVENTILATION [None]
  - EYE IRRITATION [None]
  - DEVICE ISSUE [None]
  - EYELID FUNCTION DISORDER [None]
  - HYPERSENSITIVITY [None]
